FAERS Safety Report 5048456-8 (Version None)
Quarter: 2006Q3

REPORT INFORMATION
  Report Type: 
  Country: None (occurrence: None)
  Receive Date: 20060705
  Receipt Date: 20060616
  Transmission Date: 20061208
  Serious: Yes (Hospitalization)
  Sender: FDA-Public Use
  Company Number: US200605003003

PATIENT
  Age: 83 Year
  Sex: Female

DRUGS (1)
  1. ILETIN [Suspect]
     Indication: DIABETES MELLITUS
     Dates: end: 20060511

REACTIONS (2)
  - ATRIAL FIBRILLATION [None]
  - CHEST PAIN [None]
